FAERS Safety Report 11316825 (Version 3)
Quarter: 2015Q3

REPORT INFORMATION
  Report Type: Report from Study
  Country: CA (occurrence: CA)
  Receive Date: 20150728
  Receipt Date: 20150915
  Transmission Date: 20151125
  Serious: Yes (Other)
  Sender: FDA-Public Use
  Company Number: CA-BAYER-2015-314754

PATIENT
  Age: 89 Year
  Sex: Male

DRUGS (13)
  1. KOFFEX [DEXTROMETHORPHAN HYDROBROMIDE] [Concomitant]
     Dosage: UNK
  2. ADEMPAS [Suspect]
     Active Substance: RIOCIGUAT
     Indication: PULMONARY HYPERTENSION
     Dosage: 2.5 MG, TID
     Route: 048
     Dates: start: 20150718
  3. VITAMIN B12 [Concomitant]
     Active Substance: CYANOCOBALAMIN
     Dosage: UNK
  4. TAMSULOSIN [Concomitant]
     Active Substance: TAMSULOSIN
     Dosage: UNK
  5. ADEMPAS [Suspect]
     Active Substance: RIOCIGUAT
     Indication: PULMONARY HYPERTENSION
     Dosage: 0.5 MG, TID
     Route: 048
     Dates: start: 20150528
  6. BISOPROLOL [Concomitant]
     Active Substance: BISOPROLOL
     Dosage: UNK
  7. VITAMIN D [Concomitant]
     Active Substance: CHOLECALCIFEROL
     Dosage: UNK
  8. ADEMPAS [Suspect]
     Active Substance: RIOCIGUAT
     Indication: PULMONARY HYPERTENSION
     Dosage: 2 MG, TID
     Dates: start: 20150718
  9. ADEMPAS [Suspect]
     Active Substance: RIOCIGUAT
     Indication: PULMONARY HYPERTENSION
     Dosage: 2.5 MG, TID
     Route: 048
     Dates: start: 20150731
  10. XARELTO [Concomitant]
     Active Substance: RIVAROXABAN
     Dosage: UNK
  11. EZETIMIBE. [Concomitant]
     Active Substance: EZETIMIBE
     Dosage: UNK
  12. FINASTERIDE. [Concomitant]
     Active Substance: FINASTERIDE
     Dosage: UNK
  13. OMEPRAZOLE. [Concomitant]
     Active Substance: OMEPRAZOLE
     Dosage: UNK

REACTIONS (24)
  - Muscle spasms [Not Recovered/Not Resolved]
  - Gait disturbance [None]
  - Dizziness [None]
  - Blood pressure diastolic decreased [Unknown]
  - Pollakiuria [None]
  - Feeling abnormal [Unknown]
  - Balance disorder [None]
  - Dizziness [None]
  - Balance disorder [Recovering/Resolving]
  - Abdominal discomfort [None]
  - Balance disorder [None]
  - Feeling abnormal [None]
  - Disturbance in attention [None]
  - Muscle twitching [None]
  - Pain [None]
  - Fatigue [Unknown]
  - Feeling abnormal [None]
  - Oesophageal disorder [Unknown]
  - Dysphagia [Unknown]
  - Gait disturbance [Unknown]
  - Dyspnoea [Unknown]
  - Prostatic disorder [None]
  - Headache [None]
  - Feeling abnormal [None]

NARRATIVE: CASE EVENT DATE: 20150602
